FAERS Safety Report 7317397-5 (Version None)
Quarter: 2011Q1

REPORT INFORMATION
  Report Type: 
  Country: None (occurrence: None)
  Receive Date: 20110226
  Receipt Date: 20101029
  Transmission Date: 20110831
  Serious: No
  Sender: FDA-Public Use
  Company Number: US-ALLERGAN-1014141US

PATIENT

DRUGS (1)
  1. BOTOXA? [Suspect]
     Indication: BLEPHAROSPASM
     Dosage: 5 UNITS, SINGLE

REACTIONS (2)
  - WRONG TECHNIQUE IN DRUG USAGE PROCESS [None]
  - INJECTION SITE PAIN [None]
